FAERS Safety Report 4799859-8 (Version None)
Quarter: 2005Q4

REPORT INFORMATION
  Report Type: 
  Country: None (occurrence: None)
  Receive Date: 20051013
  Receipt Date: 20051003
  Transmission Date: 20060501
  Serious: Yes (Other)
  Sender: FDA-Public Use
  Company Number: 2005136761

PATIENT
  Age: 41 Year
  Sex: Female
  Weight: 61.2356 kg

DRUGS (1)
  1. SUDAFED (PSEUDOEPHEDRINE) [Suspect]
     Indication: SINUS CONGESTION
     Dosage: ONE TAB EVERY 4-6 HOURS, ORAL
     Route: 048
     Dates: start: 20041201, end: 20050205

REACTIONS (1)
  - HYPERSENSITIVITY [None]
